FAERS Safety Report 7736187-2 (Version None)
Quarter: 2011Q3

REPORT INFORMATION
  Report Type: 
  Country: None (occurrence: None)
  Receive Date: 20110902
  Receipt Date: 20110822
  Transmission Date: 20111222
  Serious: Yes (Other)
  Sender: FDA-Public Use
  Company Number: 1000023199

PATIENT
  Sex: Male

DRUGS (4)
  1. NEBIVOLOL HCL [Suspect]
     Indication: HYPERTENSION
     Dosage: 5 MG (2.5 MG, 2 IN 1 D), ORAL
     Route: 048
     Dates: start: 20110820
  2. NEBIVOLOL HCL [Suspect]
     Indication: HYPERTENSION
     Dosage: 5 MG (2.5 MG, 2 IN 1 D), ORAL, 2.5 MG (1.25 MG, 2 IN 1 D), ORAL
     Route: 048
     Dates: start: 20110101, end: 20110101
  3. NEBIVOLOL HCL [Suspect]
     Indication: HYPERTENSION
     Dosage: 5 MG (2.5 MG, 2 IN 1 D), ORAL, 2.5 MG (1.25 MG, 2 IN 1 D), ORAL
     Route: 048
     Dates: start: 20110101, end: 20110101
  4. MARCUMAR (PHENPROCOUMON) (PHENPROCOUMON) [Concomitant]

REACTIONS (2)
  - ATRIAL FIBRILLATION [None]
  - EXTRASYSTOLES [None]
